FAERS Safety Report 21553437 (Version 1)
Quarter: 2022Q4

REPORT INFORMATION
  Report Type: Report from Study
  Country: IN (occurrence: IN)
  Receive Date: 20221104
  Receipt Date: 20221104
  Transmission Date: 20230112
  Serious: Yes (Death)
  Sender: FDA-Public Use
  Company Number: IN-002147023-NVSC2022IN035123

PATIENT
  Age: 61 Year
  Sex: Female

DRUGS (2)
  1. VOTRIENT [Suspect]
     Active Substance: PAZOPANIB HYDROCHLORIDE
     Indication: Renal cell carcinoma
     Dosage: 400 MG, QD
     Route: 065
     Dates: start: 20220101
  2. VOTRIENT [Suspect]
     Active Substance: PAZOPANIB HYDROCHLORIDE
     Dosage: 600 MG, QD
     Route: 065
     Dates: start: 20220202

REACTIONS (7)
  - Death [Fatal]
  - Back pain [Recovered/Resolved]
  - COVID-19 [Recovered/Resolved]
  - Dyspnoea [Recovering/Resolving]
  - Hypertension [Recovered/Resolved]
  - Decreased appetite [Recovered/Resolved]
  - Nausea [Recovered/Resolved]

NARRATIVE: CASE EVENT DATE: 20220101
